FAERS Safety Report 8530967-1 (Version None)
Quarter: 2012Q3

REPORT INFORMATION
  Report Type: 
  Country: None (occurrence: None)
  Receive Date: 20120723
  Receipt Date: 20120718
  Transmission Date: 20120928
  Serious: No
  Sender: FDA-Public Use
  Company Number: US-PFIZER INC-2012120305

PATIENT
  Sex: Female
  Weight: 40 kg

DRUGS (1)
  1. GENOTROPIN [Suspect]
     Indication: TURNER'S SYNDROME
     Dosage: 1 MG, 6 TIMES PER WEEK
     Route: 058
     Dates: start: 20090517

REACTIONS (2)
  - INJECTION SITE PAIN [None]
  - MUSCULAR WEAKNESS [None]
